FAERS Safety Report 8157582-6 (Version None)
Quarter: 2012Q1

REPORT INFORMATION
  Report Type: 
  Country: None (occurrence: None)
  Receive Date: 20120222
  Receipt Date: 20111027
  Transmission Date: 20120608
  Serious: No
  Sender: FDA-Public Use
  Company Number: US-ASTRAZENECA-2010SE51869

PATIENT
  Sex: Female

DRUGS (11)
  1. TENORMIN [Suspect]
     Route: 065
  2. TOPROL-XL [Suspect]
     Route: 048
  3. HYSOPHEN [Concomitant]
  4. TOPROL-XL [Suspect]
     Route: 048
  5. COREG CR [Suspect]
     Route: 065
  6. NIFEDIPINE [Suspect]
     Route: 065
  7. METOPROLOL TARTRATE [Suspect]
     Route: 048
  8. SYNTHROID [Concomitant]
  9. ZESTORETIC [Suspect]
     Dosage: 10+12.5 MG/TABLET
     Route: 048
  10. OMEPRAZOLE [Concomitant]
  11. CELEBREX [Concomitant]

REACTIONS (5)
  - MALAISE [None]
  - DRUG DOSE OMISSION [None]
  - ACTIVITIES OF DAILY LIVING IMPAIRED [None]
  - DRUG INEFFECTIVE [None]
  - BLOOD PRESSURE INADEQUATELY CONTROLLED [None]
